FAERS Safety Report 10011488 (Version 1)
Quarter: 2014Q1

REPORT INFORMATION
  Report Type: Spontaneous
  Country: US (occurrence: US)
  Receive Date: 20140314
  Receipt Date: 20140314
  Transmission Date: 20141002
  Serious: No
  Sender: FDA-Public Use
  Company Number: US-ENDO PHARMACEUTICALS INC.-OXYC20130019

PATIENT
  Age: 46 Year
  Sex: Female

DRUGS (4)
  1. OXYCODONE HCL 30MG [Suspect]
     Indication: PAIN
     Route: 048
     Dates: start: 20130502
  2. OXYCODONE HCL 30MG [Suspect]
     Indication: INSOMNIA
  3. OXYCODONE [Concomitant]
     Indication: PAIN
     Dosage: UNK
     Route: 048
     Dates: end: 20130501
  4. OXYCODONE [Concomitant]
     Indication: INSOMNIA

REACTIONS (1)
  - Eyelid oedema [Not Recovered/Not Resolved]
